FAERS Safety Report 6849992-1 (Version None)
Quarter: 2010Q3

REPORT INFORMATION
  Report Type: 
  Country: None (occurrence: None)
  Receive Date: 20100716
  Receipt Date: 20071009
  Transmission Date: 20110219
  Serious: No
  Sender: FDA-Public Use
  Company Number: US-PFIZER INC-2007085326

PATIENT
  Sex: Female

DRUGS (8)
  1. CHANTIX [Suspect]
     Indication: SMOKING CESSATION THERAPY
     Dates: start: 20071001
  2. HYDROCHLOROTHIAZIDE [Concomitant]
  3. ATENOLOL [Concomitant]
  4. EFFEXOR [Concomitant]
     Indication: DEPRESSION
  5. PREVACID [Concomitant]
  6. TRAZODONE HYDROCHLORIDE [Concomitant]
  7. TIZANIDINE HCL [Concomitant]
     Indication: MUSCLE SPASMS
  8. MORPHINE [Concomitant]
     Indication: FIBROMYALGIA

REACTIONS (4)
  - HEADACHE [None]
  - NAUSEA [None]
  - SWELLING [None]
  - WEIGHT INCREASED [None]
